FAERS Safety Report 10408585 (Version 1)
Quarter: 2014Q3

REPORT INFORMATION
  Report Type: Spontaneous
  Country: FR (occurrence: FR)
  Receive Date: 20140826
  Receipt Date: 20140826
  Transmission Date: 20150326
  Serious: Yes (Death)
  Sender: FDA-Public Use
  Company Number: PHHY2014FR104482

PATIENT
  Age: 9 Year
  Sex: Male
  Weight: 30 kg

DRUGS (17)
  1. CYTARABINE SANDOZ [Suspect]
     Active Substance: CYTARABINE
     Indication: ACUTE LYMPHOCYTIC LEUKAEMIA
     Dosage: 30 MG, ONCE/SINGLE
     Route: 037
     Dates: start: 20140428, end: 20140428
  2. KIDROLASE [Suspect]
     Active Substance: ASPARAGINASE
     Indication: ACUTE LYMPHOCYTIC LEUKAEMIA
     Dosage: UNK UKN, ON DAY 5 AND DAY 8
     Route: 042
     Dates: start: 20140427, end: 20140501
  3. ONDANSETRON AGUETTANT [Concomitant]
     Active Substance: ONDANSETRON
     Dosage: UNK UKN, UNK
     Dates: start: 20140423, end: 20140423
  4. FORTUM//CEFTAZIDIME [Concomitant]
     Dosage: UNK UKN, UNK
     Dates: start: 20140504
  5. CERUBIDINE [Suspect]
     Active Substance: DAUNORUBICIN HYDROCHLORIDE
     Dosage: 31.8 MG, ON DAY 1 AND DAY 8
     Route: 042
     Dates: start: 20140424, end: 20140501
  6. DEXAMETASON//DEXAMETHASONE [Concomitant]
     Dosage: 3.0 MG,
     Dates: start: 20140423, end: 20140423
  7. VINCRISTINE HOSPIRA [Suspect]
     Active Substance: VINCRISTINE
     Indication: ACUTE LYMPHOCYTIC LEUKAEMIA
     Dosage: 1.59 MG, ON DAY 1 AND DAY 8
     Route: 042
     Dates: start: 20140423, end: 20140501
  8. VANCOMYCIN [Concomitant]
     Active Substance: VANCOMYCIN
     Dosage: UNK UKN, UNK
     Dates: start: 20140504
  9. ENDOXAN [Suspect]
     Active Substance: CYCLOPHOSPHAMIDE
     Indication: ACUTE LYMPHOCYTIC LEUKAEMIA
     Dosage: 1060 MG, ON DAY 2
     Route: 042
     Dates: start: 20140424, end: 20140424
  10. FASTURTEC [Concomitant]
     Active Substance: RASBURICASE
     Dosage: UNK UKN, UNK
     Dates: start: 201404
  11. UROMITEXAN [Concomitant]
     Active Substance: MESNA
     Dosage: 371 MG, UNK
     Dates: start: 20140424, end: 20140424
  12. AMIKLIN [Concomitant]
     Active Substance: AMIKACIN SULFATE
     Dosage: UNK UKN, UNK
     Dates: start: 20140504
  13. PREDNISOLONE. [Suspect]
     Active Substance: PREDNISOLONE
     Indication: ACUTE LYMPHOCYTIC LEUKAEMIA
     Dosage: 15 MG, ONCE/SINGLE
     Route: 037
     Dates: start: 20140428, end: 20140428
  14. GLIVEC [Suspect]
     Active Substance: IMATINIB MESYLATE
     Indication: ACUTE LYMPHOCYTIC LEUKAEMIA
     Dosage: 300 MG, QD
     Route: 048
     Dates: start: 20140423
  15. METHOTREXATE (METHOTREXATE SODIUM) [Suspect]
     Active Substance: METHOTREXATE SODIUM
     Indication: ACUTE LYMPHOCYTIC LEUKAEMIA
     Dosage: 12 MG, ONCE/SINGLE
     Route: 037
     Dates: start: 20140428, end: 20140428
  16. SOLUPRED [Suspect]
     Active Substance: PREDNISOLONE
     Indication: ACUTE LYMPHOCYTIC LEUKAEMIA
     Dosage: 65 MG, UNK
     Route: 048
     Dates: start: 20140424, end: 20140503
  17. PLITICAN [Concomitant]
     Active Substance: ALIZAPRIDE HYDROCHLORIDE
     Dosage: UNK UKN, UNK
     Dates: start: 20140423, end: 20140423

REACTIONS (1)
  - Cerebral vasoconstriction [Fatal]

NARRATIVE: CASE EVENT DATE: 20140505
